FAERS Safety Report 15985304 (Version 3)
Quarter: 2019Q2

REPORT INFORMATION
  Report Type: Spontaneous
  Country: US (occurrence: US)
  Receive Date: 20190220
  Receipt Date: 20190410
  Transmission Date: 20190711
  Serious: No
  Sender: FDA-Public Use
  Company Number: US-AMGEN-USASP2019024141

PATIENT
  Sex: Male
  Weight: 2.72 kg

DRUGS (6)
  1. SENSIPAR [Suspect]
     Active Substance: CINACALCET HYDROCHLORIDE
     Indication: HYPERPARATHYROIDISM
     Dosage: 0.4 MG/KG, QD
     Route: 065
     Dates: start: 20170429
  2. PHOSPHORUS [Concomitant]
     Active Substance: PHOSPHORUS
     Indication: HYPERPARATHYROIDISM
     Dosage: 0.25 MMOL/KG, QD
     Dates: start: 20170426, end: 20170503
  3. SENSIPAR [Suspect]
     Active Substance: CINACALCET HYDROCHLORIDE
     Dosage: 4.8 MG/KG, QD
     Route: 065
  4. VITAMIN D3 [Concomitant]
     Active Substance: CHOLECALCIFEROL
     Indication: VITAMIN D DEFICIENCY
     Dosage: 400 IU, QD
     Dates: start: 20170426
  5. SENSIPAR [Suspect]
     Active Substance: CINACALCET HYDROCHLORIDE
     Dosage: 5 MG/KG, QD
     Route: 065
  6. SENSIPAR [Suspect]
     Active Substance: CINACALCET HYDROCHLORIDE
     Dosage: 0.5 MG/KG, QD
     Route: 065

REACTIONS (1)
  - Off label use [Unknown]
